FAERS Safety Report 6779264-5 (Version None)
Quarter: 2010Q2

REPORT INFORMATION
  Report Type: 
  Country: None (occurrence: None)
  Receive Date: 20100618
  Receipt Date: 20100608
  Transmission Date: 20101027
  Serious: Yes (Other)
  Sender: FDA-Public Use
  Company Number: US-ABBOTT-10P-163-0650328-00

PATIENT
  Sex: Female
  Weight: 72.64 kg

DRUGS (4)
  1. SYNTHROID [Suspect]
     Indication: HYPOTHYROIDISM
     Dates: start: 19500101
  2. SYNTHROID [Suspect]
     Dates: start: 20100301, end: 20100601
  3. SYNTHROID [Suspect]
     Dates: start: 20100601
  4. MULTI-VITAMIN [Concomitant]
     Indication: DRUG USE FOR UNKNOWN INDICATION

REACTIONS (9)
  - ASTHENIA [None]
  - BREAST CANCER [None]
  - CHEST DISCOMFORT [None]
  - DYSPNOEA [None]
  - GAIT DISTURBANCE [None]
  - MOOD ALTERED [None]
  - NERVOUSNESS [None]
  - PALPITATIONS [None]
  - WEIGHT INCREASED [None]
